FAERS Safety Report 5246017-9 (Version None)
Quarter: 2007Q1

REPORT INFORMATION
  Report Type: 
  Country: None (occurrence: None)
  Receive Date: 20061201
  Receipt Date: 20060805
  Transmission Date: 20070707
  Serious: No
  Sender: FDA-Public Use
  Company Number: 2006PV018951

PATIENT
  Age: 72 Year
  Sex: Female
  Weight: 86.1834 kg

DRUGS (1)
  1. BYETTA [Suspect]
     Indication: OVERWEIGHT
     Dosage: 5 MCG;BID;SC
     Route: 058
     Dates: start: 20060701

REACTIONS (2)
  - DECREASED APPETITE [None]
  - OEDEMA PERIPHERAL [None]
